FAERS Safety Report 7718238-4 (Version None)
Quarter: 2011Q3

REPORT INFORMATION
  Report Type: 
  Country: None (occurrence: None)
  Receive Date: 20110830
  Receipt Date: 20110822
  Transmission Date: 20111222
  Serious: Yes (Hospitalization)
  Sender: FDA-Public Use
  Company Number: PHFR2011GB02489

PATIENT
  Sex: Male

DRUGS (3)
  1. CLOZAPINE [Suspect]
     Indication: SCHIZOPHRENIA
     Dosage: 450 MG, QD
     Route: 048
     Dates: start: 19921023
  2. CLOZAPINE [Suspect]
     Dosage: 100 MG, UNK
     Route: 048
     Dates: start: 20110405
  3. CLOZAPINE [Suspect]
     Dates: start: 20110406

REACTIONS (7)
  - SYNCOPE [None]
  - OVERDOSE [None]
  - AGITATION [None]
  - MEDICATION ERROR [None]
  - EMOTIONAL DISTRESS [None]
  - UNRESPONSIVE TO STIMULI [None]
  - NEUTROPHILIA [None]
